FAERS Safety Report 19287026 (Version 1)
Quarter: 2021Q2

REPORT INFORMATION
  Report Type: Report from Study
  Country: US (occurrence: US)
  Receive Date: 20210522
  Receipt Date: 20210522
  Transmission Date: 20210717
  Serious: No
  Sender: FDA-Public Use
  Company Number: NVSC2021US108285

PATIENT
  Age: 55 Year
  Sex: Female

DRUGS (2)
  1. KESIMPTA [Suspect]
     Active Substance: OFATUMUMAB
     Indication: MULTIPLE SCLEROSIS
  2. KESIMPTA [Suspect]
     Active Substance: OFATUMUMAB
     Indication: RELAPSING-REMITTING MULTIPLE SCLEROSIS
     Dosage: 20 MG, QMO(DAY 0; LOADING DOSE #1)
     Route: 058
     Dates: start: 20210511, end: 20210511

REACTIONS (6)
  - Pyrexia [Recovering/Resolving]
  - Fatigue [Recovering/Resolving]
  - Musculoskeletal stiffness [Unknown]
  - Chills [Recovering/Resolving]
  - Headache [Recovering/Resolving]
  - Abdominal rigidity [Unknown]

NARRATIVE: CASE EVENT DATE: 20210511
